FAERS Safety Report 7930131-0 (Version None)
Quarter: 2011Q4

REPORT INFORMATION
  Report Type: 
  Country: None (occurrence: None)
  Receive Date: 20111121
  Receipt Date: 20111114
  Transmission Date: 20120403
  Serious: Yes (Other)
  Sender: FDA-Public Use
  Company Number: US-PFIZER INC-2011279608

PATIENT
  Sex: Male
  Weight: 81.633 kg

DRUGS (1)
  1. VIAGRA [Suspect]
     Indication: MALE SEXUAL DYSFUNCTION
     Dosage: UNK, AS NEEDED

REACTIONS (3)
  - DRUG INEFFECTIVE [None]
  - FLUSHING [None]
  - BLOOD CHOLESTEROL INCREASED [None]
